FAERS Safety Report 18136521 (Version 1)
Quarter: 2020Q3

REPORT INFORMATION
  Report Type: Report from Study
  Country: US (occurrence: US)
  Receive Date: 20200811
  Receipt Date: 20200811
  Transmission Date: 20201103
  Serious: No
  Sender: FDA-Public Use
  Company Number: NVSC2020US215995

PATIENT
  Sex: Female

DRUGS (1)
  1. COSENTYX [Suspect]
     Active Substance: SECUKINUMAB
     Indication: PSORIATIC ARTHROPATHY
     Dosage: (ONCE A WEEK FOR 5 WEEKS AND THEN Q4)
     Route: 058

REACTIONS (3)
  - Psoriasis [Recovering/Resolving]
  - Pain [Recovering/Resolving]
  - Product dose omission issue [Recovering/Resolving]
